FAERS Safety Report 7549975-2 (Version None)
Quarter: 2011Q2

REPORT INFORMATION
  Report Type: 
  Country: None (occurrence: None)
  Receive Date: 20110615
  Receipt Date: 20110614
  Transmission Date: 20111010
  Serious: Yes (Other)
  Sender: FDA-Public Use
  Company Number: US-PFIZER INC-2011130359

PATIENT
  Sex: Male
  Weight: 95.238 kg

DRUGS (2)
  1. ACYCLOVIR [Interacting]
     Indication: CONJUNCTIVITIS
     Dosage: FOUR DOSES OF 200 MG DAILY
     Dates: start: 20080101
  2. ZOLOFT [Suspect]
     Indication: ANXIETY
     Dosage: 100 MG, DAILY
     Dates: start: 20110101

REACTIONS (5)
  - FATIGUE [None]
  - INSOMNIA [None]
  - NIGHT SWEATS [None]
  - DRUG INTERACTION [None]
  - BLOOD CHOLESTEROL INCREASED [None]
